FAERS Safety Report 12064329 (Version 1)
Quarter: 2016Q1

REPORT INFORMATION
  Report Type: Spontaneous
  Country: None (occurrence: US)
  Receive Date: 20160210
  Receipt Date: 20160210
  Transmission Date: 20160526
  Serious: Yes (Other)
  Sender: FDA-Public Use
  Company Number: US-MATRIXX INITIATIVES, INC.-1047631

PATIENT
  Age: 8 Year
  Sex: Male
  Weight: 32.27 kg

DRUGS (2)
  1. CHILDRENS MOTRIN [Concomitant]
     Active Substance: IBUPROFEN
  2. ZICAM TOTAL IMMUNE CRYSTALS [Suspect]
     Active Substance: MINERALS\VITAMINS
     Indication: NASOPHARYNGITIS
     Route: 048
     Dates: start: 20160129, end: 20160129

REACTIONS (3)
  - Lip swelling [Recovered/Resolved]
  - Eye swelling [Recovered/Resolved]
  - Nasal congestion [Recovered/Resolved]
